FAERS Safety Report 10733158 (Version 1)
Quarter: 2015Q1

REPORT INFORMATION
  Report Type: Spontaneous
  Country: JP (occurrence: JP)
  Receive Date: 20150123
  Receipt Date: 20150123
  Transmission Date: 20150721
  Serious: Yes (Hospitalization)
  Sender: FDA-Public Use
  Company Number: PHHY2015JP005952

PATIENT
  Age: 32 Year
  Sex: Female
  Weight: 69.5 kg

DRUGS (20)
  1. NITROUS OXIDE. [Concomitant]
     Active Substance: NITROUS OXIDE
     Indication: INDUCTION OF ANAESTHESIA
     Dosage: 4 L/MIN
     Route: 065
  2. RITODRINE [Suspect]
     Active Substance: RITODRINE
     Indication: THREATENED LABOUR
     Dosage: 100 MG, QD
     Route: 042
  3. RITODRINE [Suspect]
     Active Substance: RITODRINE
     Dosage: 250 MG, QD
     Route: 042
  4. SEVOFLURANE. [Concomitant]
     Active Substance: SEVOFLURANE
     Dosage: 0.6 %, UNK
     Route: 065
  5. OXYGEN. [Concomitant]
     Active Substance: OXYGEN
     Indication: INDUCTION OF ANAESTHESIA
     Dosage: 6 L/MIN
     Route: 065
  6. THIAMYLAL [Concomitant]
     Active Substance: THIAMYLAL
     Indication: INDUCTION OF ANAESTHESIA
     Dosage: 300 MG, UNK
     Route: 065
  7. NIFEDIPINE. [Suspect]
     Active Substance: NIFEDIPINE
     Indication: PRE-ECLAMPSIA
     Route: 065
  8. OXYGEN. [Concomitant]
     Active Substance: OXYGEN
     Dosage: 2 L/MIN
     Route: 065
  9. ATROPINE [Concomitant]
     Active Substance: ATROPINE
     Indication: PRODUCT USED FOR UNKNOWN INDICATION
     Dosage: 1 MG, UNK
     Route: 065
  10. OXYTOCIN. [Suspect]
     Active Substance: OXYTOCIN
     Indication: LABOUR INDUCTION
     Route: 042
  11. METHYLERGOMETRINE [Concomitant]
     Active Substance: METHYLERGONOVINE MALEATE
     Indication: UTERINE CONTRACTIONS DURING PREGNANCY
     Dosage: 0.2 MG, UNK
     Route: 042
  12. EPHEDRINE HYDROCHLORIDE [Concomitant]
     Active Substance: EPHEDRINE HYDROCHLORIDE
     Indication: PRODUCT USED FOR UNKNOWN INDICATION
     Route: 065
  13. FLUMAZENIL. [Concomitant]
     Active Substance: FLUMAZENIL
     Indication: PRODUCT USED FOR UNKNOWN INDICATION
     Dosage: 0.5 MG, UNK
     Route: 042
  14. NEOSTIGMINE [Concomitant]
     Active Substance: NEOSTIGMINE
     Indication: PRODUCT USED FOR UNKNOWN INDICATION
     Dosage: 2 MG, UNK
     Route: 065
  15. SUCCINYLCHOLINE CHLORIDE. [Suspect]
     Active Substance: SUCCINYLCHOLINE CHLORIDE
     Indication: INDUCTION OF ANAESTHESIA
     Dosage: 100 MG, UNK
     Route: 065
  16. VECURONIUM [Concomitant]
     Active Substance: VECURONIUM BROMIDE
     Indication: INDUCTION OF ANAESTHESIA
     Dosage: 5 MG, UNK
     Route: 065
  17. PENTAZOCINE [Concomitant]
     Active Substance: PENTAZOCINE
     Indication: UTERINE CONTRACTIONS DURING PREGNANCY
     Dosage: 15 MG, UNK
     Route: 065
  18. SEVOFLURANE. [Concomitant]
     Active Substance: SEVOFLURANE
     Indication: INDUCTION OF ANAESTHESIA
     Dosage: 1 %, UNK
     Route: 065
  19. MIDAZOLAM [Concomitant]
     Active Substance: MIDAZOLAM\MIDAZOLAM HYDROCHLORIDE
     Indication: UTERINE CONTRACTIONS DURING PREGNANCY
     Dosage: 5 MG, UNK
     Route: 065
  20. METHOXAMINE [Concomitant]
     Active Substance: METHOXAMINE
     Indication: PRODUCT USED FOR UNKNOWN INDICATION
     Route: 065

REACTIONS (16)
  - Antithrombin III decreased [Unknown]
  - Pyrexia [Unknown]
  - Disseminated intravascular coagulation [Recovering/Resolving]
  - Hyperkalaemia [Unknown]
  - Shock haemorrhagic [Unknown]
  - Pulmonary oedema [Unknown]
  - Sepsis [Unknown]
  - Anaphylactoid syndrome of pregnancy [Recovering/Resolving]
  - Uterine haematoma [Unknown]
  - Maternal exposure during pregnancy [Unknown]
  - Acute respiratory distress syndrome [Unknown]
  - Uterine haemorrhage [Unknown]
  - Metabolic acidosis [Recovering/Resolving]
  - Respiratory distress [Unknown]
  - Pre-eclampsia [Unknown]
  - Premature delivery [Unknown]
